FAERS Safety Report 9157172 (Version 2)
Quarter: 2013Q1

REPORT INFORMATION
  Report Type: Spontaneous
  Country: US (occurrence: US)
  Receive Date: 20130312
  Receipt Date: 20130318
  Transmission Date: 20140127
  Serious: Yes (Death)
  Sender: FDA-Public Use
  Company Number: US-UCBSA-080110

PATIENT
  Age: 84 Year
  Sex: Female

DRUGS (6)
  1. LEVETIRACETAM [Suspect]
     Indication: MUSCLE TWITCHING
     Dosage: UNKNOWN DOSE
  2. PROPRANOLOL [Concomitant]
  3. CLONIDINE [Concomitant]
  4. CLONAZEPAM [Concomitant]
  5. PHENYTOIN [Concomitant]
  6. MULTIVITAMIN [Concomitant]

REACTIONS (1)
  - Drug ineffective for unapproved indication [Fatal]
